FAERS Safety Report 8125404-5 (Version None)
Quarter: 2012Q1

REPORT INFORMATION
  Report Type: 
  Country: None (occurrence: None)
  Receive Date: 20120209
  Receipt Date: 20120206
  Transmission Date: 20120608
  Serious: Yes (Hospitalization, Disabling)
  Sender: FDA-Public Use
  Company Number: US-MERCK-1107USA03583

PATIENT
  Age: 70 Year
  Sex: Female

DRUGS (2)
  1. FOSAMAX [Suspect]
     Route: 048
  2. FOSAMAX [Suspect]
     Indication: OSTEOPOROSIS
     Route: 048
     Dates: start: 19970101, end: 20090101

REACTIONS (15)
  - ARTHROPATHY [None]
  - DENTAL CARIES [None]
  - ORAL INFECTION [None]
  - WEIGHT DECREASED [None]
  - FISTULA [None]
  - GINGIVAL DISORDER [None]
  - IMPAIRED HEALING [None]
  - BLOOD CHOLESTEROL INCREASED [None]
  - JAW DISORDER [None]
  - TOOTH DISORDER [None]
  - CARDIOVASCULAR DISORDER [None]
  - RHEUMATOID ARTHRITIS [None]
  - INAPPROPRIATE SCHEDULE OF DRUG ADMINISTRATION [None]
  - OSTEONECROSIS OF JAW [None]
  - CARDIAC DISORDER [None]
